FAERS Safety Report 17572738 (Version 1)
Quarter: 2020Q1

REPORT INFORMATION
  Report Type: Spontaneous
  Country: CN (occurrence: CN)
  Receive Date: 20200323
  Receipt Date: 20200323
  Transmission Date: 20200409
  Serious: Yes (Other)
  Sender: FDA-Public Use
  Company Number: CN-BAYER-2020-045184

PATIENT
  Age: 56 Year
  Sex: Male

DRUGS (24)
  1. TALCID (DAXI) [Suspect]
     Active Substance: HYDROTALCITE
     Indication: GASTROINTESTINAL DISORDER PROPHYLAXIS
     Dosage: UNK
     Dates: start: 20200207
  2. KALETRA [Concomitant]
     Active Substance: LOPINAVIR\RITONAVIR
     Dosage: UNK
     Dates: start: 20200208, end: 20200222
  3. AMBROXOL [Concomitant]
     Active Substance: AMBROXOL
     Dosage: UNK
     Dates: start: 20200207
  4. INTERFERON [Concomitant]
     Active Substance: INTERFERON
     Dosage: UNK
     Route: 055
     Dates: start: 20200208, end: 20200222
  5. BIFIDOBACTERIUM ADOLESCENTIS [Concomitant]
     Active Substance: BIFIDOBACTERIUM LONGUM
     Dosage: UNK
     Dates: start: 20200207
  6. OMEPRAZOLE. [Concomitant]
     Active Substance: OMEPRAZOLE
     Dosage: UNK
     Dates: start: 202002
  7. INTERFERON [Concomitant]
     Active Substance: INTERFERON
     Dosage: UNK
     Route: 055
     Dates: start: 20200206, end: 20200207
  8. METHYLPREDNISOLONE. [Concomitant]
     Active Substance: METHYLPREDNISOLONE
     Dosage: 40 MG
     Dates: start: 20200205, end: 20200207
  9. METHYLPREDNISOLONE. [Concomitant]
     Active Substance: METHYLPREDNISOLONE
     Dosage: 40 MG, BID
     Dates: start: 20200209, end: 20200215
  10. GAMMA GLOBULIN [Concomitant]
     Active Substance: IMMUNE GLOBULIN NOS
     Dosage: 25 MG, QD
     Route: 041
     Dates: start: 20200209, end: 20200221
  11. IMMUNE GLOBULIN NOS [Concomitant]
     Active Substance: IMMUNE GLOBULIN NOS
     Dosage: 25 MG, QD
     Dates: start: 20200209, end: 20200221
  12. OXYGEN. [Concomitant]
     Active Substance: OXYGEN
     Dosage: UNK
     Route: 055
     Dates: start: 20200205, end: 20200207
  13. THYMALFASIN [Concomitant]
     Active Substance: THYMALFASIN
     Dosage: UNK
     Dates: start: 20200213
  14. KALETRA [Concomitant]
     Active Substance: LOPINAVIR\RITONAVIR
     Dosage: UNK
     Dates: start: 20200204, end: 20200207
  15. ARBIDOL [Concomitant]
     Active Substance: UMIFENOVIR
     Indication: ELECTROLYTE IMBALANCE
     Dosage: UNK
     Dates: start: 20200205, end: 20200207
  16. ARBIDOL [Concomitant]
     Active Substance: UMIFENOVIR
     Indication: ELECTROLYTE IMBALANCE
     Dosage: UNK
     Dates: start: 20200209, end: 20200223
  17. ATORVASTATIN [Concomitant]
     Active Substance: ATORVASTATIN
  18. INTERFERON [Concomitant]
     Active Substance: INTERFERON
     Dosage: 50000000 U, BID
     Route: 055
     Dates: start: 20200207
  19. METHYLPREDNISOLONE. [Concomitant]
     Active Substance: METHYLPREDNISOLONE
     Dosage: 40 MG, QD
     Dates: start: 20200216, end: 20200220
  20. AVELOX [Suspect]
     Active Substance: MOXIFLOXACIN HYDROCHLORIDE
     Indication: CORONA VIRUS INFECTION
     Dosage: 0.4 G, QD
     Route: 041
     Dates: start: 20200212, end: 20200222
  21. METHYLPREDNISOLONE. [Concomitant]
     Active Substance: METHYLPREDNISOLONE
     Dosage: 20 MG, QD
     Dates: start: 20200221, end: 20200223
  22. OXYGEN. [Concomitant]
     Active Substance: OXYGEN
     Dosage: UNK
     Route: 055
     Dates: start: 20200209
  23. HUMAN ALBUMIN [Concomitant]
     Active Substance: ALBUMIN HUMAN
     Dosage: 10 MG, BID
     Dates: start: 20200214, end: 20200219
  24. HUMAN ALBUMIN [Concomitant]
     Active Substance: ALBUMIN HUMAN
     Dosage: 10 MG, QD
     Dates: start: 20200220, end: 20200223

REACTIONS (5)
  - Leukoplakia oral [None]
  - Mouth ulceration [None]
  - Oropharyngeal pain [None]
  - Product use in unapproved indication [None]
  - Off label use [None]

NARRATIVE: CASE EVENT DATE: 20200212
